FAERS Safety Report 13592955 (Version 3)
Quarter: 2017Q3

REPORT INFORMATION
  Report Type: Spontaneous
  Country: DE (occurrence: DE)
  Receive Date: 20170530
  Receipt Date: 20170907
  Transmission Date: 20171127
  Serious: Yes (Other)
  Sender: FDA-Public Use
  Company Number: PHHY2017DE078542

PATIENT
  Sex: Male
  Weight: 80 kg

DRUGS (1)
  1. DIOVAN [Suspect]
     Active Substance: VALSARTAN
     Indication: HYPERTENSION
     Dosage: 0.5 DF (20 MG), QD
     Route: 065
     Dates: start: 201604, end: 20170308

REACTIONS (3)
  - Arrhythmia [Recovered/Resolved]
  - Hyperkalaemia [Recovered/Resolved]
  - Ventricular extrasystoles [Recovered/Resolved]

NARRATIVE: CASE EVENT DATE: 201703
